FAERS Safety Report 18599518 (Version 2)
Quarter: 2021Q1

REPORT INFORMATION
  Report Type: Report from Study
  Country: US (occurrence: US)
  Receive Date: 20201210
  Receipt Date: 20210107
  Transmission Date: 20210419
  Serious: No
  Sender: FDA-Public Use
  Company Number: US-BIOVITRUM-2020US7042

PATIENT
  Sex: Female

DRUGS (5)
  1. KINERET [Suspect]
     Active Substance: ANAKINRA
     Indication: PRODUCT USED FOR UNKNOWN INDICATION
     Route: 058
     Dates: start: 20201125
  2. MULTIVITAMIN [Concomitant]
     Active Substance: VITAMINS
  3. PROGESTERONE CREAM [Concomitant]
     Active Substance: PROGESTERONE
  4. TURMERIC [Concomitant]
     Active Substance: HERBALS\TURMERIC
  5. BIOESTROGEN [Concomitant]

REACTIONS (7)
  - Contusion [Unknown]
  - Injection site pruritus [Recovered/Resolved]
  - Injection site erythema [Recovered/Resolved]
  - Urticaria [Unknown]
  - Injection site reaction [Unknown]
  - Pruritus [Unknown]
  - Erythema [Unknown]
